FAERS Safety Report 9473186 (Version 3)
Quarter: 2014Q3

REPORT INFORMATION
  Report Type: Spontaneous
  Country: US (occurrence: US)
  Receive Date: 20130823
  Receipt Date: 20140808
  Transmission Date: 20150326
  Serious: No
  Sender: FDA-Public Use
  Company Number: US-BRISTOL-MYERS SQUIBB COMPANY-18736710

PATIENT
  Age: 70 Year
  Sex: Male
  Weight: 86.17 kg

DRUGS (11)
  1. SPRYCEL [Suspect]
     Active Substance: DASATINIB
     Indication: CHRONIC MYELOID LEUKAEMIA
     Dosage: ONGOING?SEP2012
     Route: 048
     Dates: start: 20121002
  2. ASPIRIN. [Concomitant]
     Active Substance: ASPIRIN
     Route: 048
  3. FLUTICASONE [Concomitant]
     Active Substance: FLUTICASONE\FLUTICASONE PROPIONATE
     Dosage: 1DF = 2 SPRAYS
     Route: 045
  4. LEVOTHYROXINE [Concomitant]
     Active Substance: LEVOTHYROXINE
     Route: 048
  5. SYNTHROID [Concomitant]
     Active Substance: LEVOTHYROXINE SODIUM
  6. LASIX [Concomitant]
     Active Substance: FUROSEMIDE
  7. TEMAZEPAM. [Concomitant]
     Active Substance: TEMAZEPAM
     Route: 048
  8. MELATONIN [Concomitant]
     Active Substance: MELATONIN
     Route: 048
  9. CETIRIZINE [Concomitant]
     Active Substance: CETIRIZINE HYDROCHLORIDE
     Route: 048
  10. PRAVASTATIN [Concomitant]
     Active Substance: PRAVASTATIN\PRAVASTATIN SODIUM
     Route: 048
  11. LISINOPRIL. [Concomitant]
     Active Substance: LISINOPRIL
     Route: 048

REACTIONS (7)
  - Dyspnoea [Unknown]
  - Swelling [Not Recovered/Not Resolved]
  - Bronchitis [Unknown]
  - Fatigue [Unknown]
  - Diplopia [Not Recovered/Not Resolved]
  - Immune system disorder [Unknown]
  - Dizziness [Unknown]

NARRATIVE: CASE EVENT DATE: 20121115
